FAERS Safety Report 22608418 (Version 1)
Quarter: 2023Q2

REPORT INFORMATION
  Report Type: Report from Study
  Country: EG (occurrence: EG)
  Receive Date: 20230616
  Receipt Date: 20230616
  Transmission Date: 20230722
  Serious: Yes (Other)
  Sender: FDA-Public Use
  Company Number: EG-002147023-NVSC2023EG136640

PATIENT
  Sex: Male

DRUGS (1)
  1. ENTRESTO [Suspect]
     Active Substance: SACUBITRIL\VALSARTAN
     Indication: Product used for unknown indication
     Dosage: 1 DOSAGE FORM, QD (AFTER BREAKFAST)
     Route: 048

REACTIONS (3)
  - Diabetes mellitus [Unknown]
  - Hypotension [Not Recovered/Not Resolved]
  - Inappropriate schedule of product administration [Unknown]
